FAERS Safety Report 5911434-8 (Version None)
Quarter: 2008Q4

REPORT INFORMATION
  Report Type: 
  Country: None (occurrence: None)
  Receive Date: 20081007
  Receipt Date: 20080925
  Transmission Date: 20090506
  Serious: Yes (Life-Threatening)
  Sender: FDA-Public Use
  Company Number: US-PFIZER INC-2008081382

PATIENT
  Sex: Female
  Weight: 60 kg

DRUGS (4)
  1. NORPACE [Suspect]
     Indication: VENTRICULAR ARRHYTHMIA
  2. DETROL LA [Suspect]
     Indication: HYPERTONIC BLADDER
     Route: 048
     Dates: start: 20080601, end: 20080801
  3. ESTRADIOL [Concomitant]
  4. PROPAFENONE HCL [Concomitant]
     Indication: ATRIAL FIBRILLATION
     Dosage: DAILY DOSE:150MG

REACTIONS (1)
  - RESPIRATORY FAILURE [None]
